FAERS Safety Report 23423979 (Version 1)
Quarter: 2024Q1

REPORT INFORMATION
  Report Type: Spontaneous
  Country: GB (occurrence: GB)
  Receive Date: 20240120
  Receipt Date: 20240120
  Transmission Date: 20240409
  Serious: Yes (Life-Threatening, Other)
  Sender: FDA-Public Use
  Company Number: GB-MHRA-MED-202401080904040790-PJHTR

PATIENT
  Age: 65 Year
  Sex: Female
  Weight: 58 kg

DRUGS (2)
  1. HYDROCHLOROTHIAZIDE\LOSARTAN POTASSIUM [Suspect]
     Active Substance: HYDROCHLOROTHIAZIDE\LOSARTAN POTASSIUM
     Indication: Adverse drug reaction
     Dosage: UNK, 100/12.5
     Route: 065
     Dates: start: 20231210, end: 20231214
  2. BECLOMETHASONE DIPROPIONATE [Concomitant]
     Active Substance: BECLOMETHASONE DIPROPIONATE
     Indication: Asthma
     Dosage: UNK
     Route: 065

REACTIONS (1)
  - Shock [Recovered/Resolved]

NARRATIVE: CASE EVENT DATE: 20231214
